FAERS Safety Report 15988110 (Version 2)
Quarter: 2019Q1

REPORT INFORMATION
  Report Type: Report from Study
  Country: US (occurrence: US)
  Receive Date: 20190220
  Receipt Date: 20190226
  Transmission Date: 20190418
  Serious: No
  Sender: FDA-Public Use
  Company Number: US-ROCHE-2268493

PATIENT
  Sex: Female
  Weight: 61.29 kg

DRUGS (8)
  1. OCREVUS [Suspect]
     Active Substance: OCRELIZUMAB
     Indication: RELAPSING MULTIPLE SCLEROSIS
     Route: 065
     Dates: start: 20180817
  2. PROPANOLOL [Concomitant]
     Active Substance: PROPRANOLOL HYDROCHLORIDE
     Route: 065
  3. SOMA [Concomitant]
     Active Substance: CARISOPRODOL
  4. OCREVUS [Suspect]
     Active Substance: OCRELIZUMAB
     Route: 050
  5. MORPHINE [Concomitant]
     Active Substance: MORPHINE
     Indication: PAIN
     Dosage: TIME RELEASED
     Route: 065
  6. OCREVUS [Suspect]
     Active Substance: OCRELIZUMAB
     Dosage: DAY 1 AND DAY 15
     Route: 050
  7. GABAPENTIN. [Concomitant]
     Active Substance: GABAPENTIN
     Dosage: AT NIGHT
     Route: 065
  8. TRINTELLIX [Concomitant]
     Active Substance: VORTIOXETINE HYDROBROMIDE
     Indication: DEPRESSION

REACTIONS (11)
  - Nasopharyngitis [Recovered/Resolved]
  - Confusional state [Not Recovered/Not Resolved]
  - Breast enlargement [Unknown]
  - Influenza [Recovered/Resolved]
  - Speech disorder [Recovered/Resolved]
  - Swelling [Unknown]
  - Swelling face [Unknown]
  - Depression [Unknown]
  - Fatigue [Recovered/Resolved]
  - Flushing [Unknown]
  - Band sensation [Recovered/Resolved]
